FAERS Safety Report 13151120 (Version 1)
Quarter: 2017Q1

REPORT INFORMATION
  Report Type: Spontaneous
  Country: US (occurrence: US)
  Receive Date: 20170125
  Receipt Date: 20170125
  Transmission Date: 20170428
  Serious: Yes (Hospitalization, Other)
  Sender: FDA-Public Use
  Company Number: None

PATIENT
  Age: 73 Year
  Sex: Female
  Weight: 63.5 kg

DRUGS (24)
  1. TRAMADOL. [Concomitant]
     Active Substance: TRAMADOL
  2. ALREX [Concomitant]
     Active Substance: LOTEPREDNOL ETABONATE
  3. TENS UNIT [Concomitant]
  4. BABY ASPIRIN [Concomitant]
     Active Substance: ASPIRIN
  5. PHILLIPS CAPLETS [Concomitant]
  6. UNSPECIFIED INGREDIENT [Concomitant]
     Active Substance: UNSPECIFIED INGREDIENT
  7. ADVIL [Concomitant]
     Active Substance: IBUPROFEN
  8. AMITIZA [Concomitant]
     Active Substance: LUBIPROSTONE
  9. CREON [Concomitant]
     Active Substance: PANCRELIPASE AMYLASE\PANCRELIPASE LIPASE\PANCRELIPASE PROTEASE
  10. CITRUCEL [Concomitant]
     Active Substance: METHYLCELLULOSE (4000 MPA.S)
  11. SALINE NASAL SPRAY [Concomitant]
     Active Substance: SODIUM CHLORIDE
  12. ACTONEL [Suspect]
     Active Substance: RISEDRONATE SODIUM
     Indication: OSTEOPOROSIS PROPHYLAXIS
     Dosage: ?          QUANTITY:[WITT?I PILL;?
     Route: 048
     Dates: start: 200302, end: 201607
  13. IC RISEDRONATE SODIUM 35 MG TAB [Suspect]
     Active Substance: RISEDRONATE SODIUM
     Route: 048
  14. CLORAZAPATE [Concomitant]
  15. SYMAX [Concomitant]
     Active Substance: HYOSCYAMINE SULFATE
  16. SOOTHE [Concomitant]
     Active Substance: BISMUTH SUBSALICYLATE\GLYCERIN\PROPYLENE GLYCOL
  17. GAS-X [Concomitant]
     Active Substance: DIMETHICONE
  18. SYNTHROID [Concomitant]
     Active Substance: LEVOTHYROXINE SODIUM
  19. BENADRYL [Concomitant]
     Active Substance: DIPHENHYDRAMINE HYDROCHLORIDE
  20. COENZYME Q10 [Concomitant]
     Active Substance: UBIDECARENONE
  21. CENTRUM VITAMINS LIQUID [Concomitant]
     Active Substance: VITAMINS
  22. ZANTAC [Concomitant]
     Active Substance: RANITIDINE HYDROCHLORIDE
  23. PANTOPRAZOLE [Concomitant]
     Active Substance: PANTOPRAZOLE SODIUM
  24. VITAMIN D3 [Concomitant]
     Active Substance: CHOLECALCIFEROL

REACTIONS (3)
  - Gait disturbance [None]
  - Pain in extremity [None]
  - Lower limb fracture [None]
